FAERS Safety Report 5621661-5 (Version None)
Quarter: 2008Q1

REPORT INFORMATION
  Report Type: 
  Country: None (occurrence: None)
  Receive Date: 20080211
  Receipt Date: 20080206
  Transmission Date: 20080703
  Serious: Yes (Death, Life-Threatening, Hospitalization)
  Sender: FDA-Public Use
  Company Number: JP-ASTRAZENECA-2008AP00697

PATIENT
  Age: 66 Year
  Sex: Female

DRUGS (14)
  1. CRESTOR [Suspect]
     Indication: HYPERLIPIDAEMIA
     Route: 048
     Dates: end: 20080123
  2. UNKNOWN DRUG [Suspect]
     Indication: NASOPHARYNGITIS
     Route: 048
     Dates: start: 20080119, end: 20080119
  3. MEXITIL [Suspect]
     Dosage: FREQUENCY UNKNOWN
     Route: 048
     Dates: end: 20080123
  4. LULLAN [Suspect]
     Dosage: FREQUENCY UNKNOWN
     Route: 048
     Dates: end: 20080123
  5. ZYLORIC [Suspect]
     Dosage: FREQUENCY UNKNOWN
     Route: 048
     Dates: end: 20030123
  6. MEDET [Concomitant]
     Dosage: DOSE UNKNOWN
     Route: 048
     Dates: end: 20080123
  7. FLUVOXAMINE MALEATE [Concomitant]
     Dosage: DOSE UNKNOWN
     Route: 048
     Dates: end: 20080123
  8. AMOBAN [Concomitant]
     Dosage: DOSE UNKNOWN
     Route: 048
     Dates: end: 20080123
  9. WARFARIN SODIUM [Concomitant]
     Dosage: DOSE UNKNOWN
     Route: 048
     Dates: end: 20080123
  10. DIART [Concomitant]
     Dosage: DOSE UNKNOWN
     Route: 048
     Dates: end: 20080123
  11. ARTIST [Concomitant]
     Dosage: DOSE UNKNOWN
     Route: 048
     Dates: end: 20080123
  12. GABAPEN [Concomitant]
     Dosage: DOSE UNKNOWN
     Route: 048
     Dates: end: 20080123
  13. UNKNOWNDRUG [Concomitant]
     Dosage: DOSE UNKNOWN
     Route: 048
     Dates: end: 20080125
  14. NOVOLIN R [Concomitant]
     Dosage: DOSE UNKNOWN
     Route: 065
     Dates: end: 20080123

REACTIONS (3)
  - CARDIAC ARREST [None]
  - DEATH [None]
  - RASH [None]
